FAERS Safety Report 11252515 (Version 1)
Quarter: 2015Q3

REPORT INFORMATION
  Report Type: Spontaneous
  Country: US (occurrence: US)
  Receive Date: 20150708
  Receipt Date: 20150708
  Transmission Date: 20151125
  Serious: No
  Sender: FDA-Public Use
  Company Number: US-ELI_LILLY_AND_COMPANY-US201407001123

PATIENT
  Sex: Female

DRUGS (4)
  1. CYRAMZA [Suspect]
     Active Substance: RAMUCIRUMAB
     Indication: GASTRIC CANCER
     Dosage: UNK
     Dates: start: 20140611, end: 20140625
  2. IRINATOLON                         /00372301/ [Concomitant]
     Indication: GASTRIC CANCER
  3. CARBOPLATIN. [Concomitant]
     Active Substance: CARBOPLATIN
  4. BENADRYL [Concomitant]
     Active Substance: DIPHENHYDRAMINE HYDROCHLORIDE
     Indication: PREMEDICATION

REACTIONS (2)
  - Off label use [Recovered/Resolved]
  - Hypersensitivity [Recovered/Resolved]
